FAERS Safety Report 13908696 (Version 1)
Quarter: 2017Q3

REPORT INFORMATION
  Report Type: Report from Study
  Country: US (occurrence: US)
  Receive Date: 20170827
  Receipt Date: 20170827
  Transmission Date: 20171127
  Serious: Yes (Death, Other)
  Sender: FDA-Public Use
  Company Number: US-KAMADA LIMITED-2017US002489

PATIENT

DRUGS (5)
  1. VITAMIN D                          /00107901/ [Concomitant]
     Active Substance: ERGOCALCIFEROL
  2. GLASSIA [Suspect]
     Active Substance: .ALPHA.1-PROTEINASE INHIBITOR HUMAN
     Indication: PRODUCT USED FOR UNKNOWN INDICATION
     Route: 058
  3. SPIRIVA [Concomitant]
     Active Substance: TIOTROPIUM BROMIDE MONOHYDRATE
  4. ALBUTEROL                          /00139501/ [Concomitant]
     Active Substance: ALBUTEROL
  5. VITAMIN B [Concomitant]
     Active Substance: VITAMIN B

REACTIONS (6)
  - Hepatic cirrhosis [Fatal]
  - General physical health deterioration [Unknown]
  - Incorrect route of drug administration [Unknown]
  - Pneumothorax [Unknown]
  - Pleural infection bacterial [Unknown]
  - Pleural effusion [Unknown]

NARRATIVE: CASE EVENT DATE: 201611
